FAERS Safety Report 4396621-5 (Version None)
Quarter: 2004Q3

REPORT INFORMATION
  Report Type: 
  Country: None (occurrence: None)
  Receive Date: 20040713
  Receipt Date: 20040713
  Transmission Date: 20050211
  Serious: Yes (Hospitalization)
  Sender: FDA-Public Use
  Company Number: None

PATIENT
  Age: 3 Year
  Sex: Male
  Weight: 18.6 kg

DRUGS (3)
  1. RISPERDAL [Suspect]
     Indication: ATTENTION DEFICIT/HYPERACTIVITY DISORDER
     Dosage: 1 MG PO QD
     Route: 048
     Dates: start: 20031222, end: 20031225
  2. ZYRTEC [Suspect]
     Dosage: 7.5 MG PO QHS
     Route: 048
     Dates: start: 20031222, end: 20031225
  3. ZYRTEC [Suspect]
     Dosage: 7.5 MG PO QHS
     Route: 048
     Dates: start: 20040101, end: 20040301

REACTIONS (14)
  - ABNORMAL BEHAVIOUR [None]
  - ATAXIA [None]
  - CONVULSION [None]
  - DEPRESSED LEVEL OF CONSCIOUSNESS [None]
  - DROOLING [None]
  - EYE MOVEMENT DISORDER [None]
  - FALL [None]
  - FLUID INTAKE REDUCED [None]
  - INAPPROPRIATE AFFECT [None]
  - MENTAL STATUS CHANGES [None]
  - SOMNOLENCE [None]
  - SPEECH DISORDER [None]
  - STARING [None]
  - TREMOR [None]
